FAERS Safety Report 17741190 (Version 1)
Quarter: 2020Q2

REPORT INFORMATION
  Report Type: Spontaneous
  Country: IN (occurrence: IN)
  Receive Date: 20200504
  Receipt Date: 20200504
  Transmission Date: 20200714
  Serious: Yes (Death)
  Sender: FDA-Public Use
  Company Number: NVSC2020IN119166

PATIENT
  Age: 64 Year
  Sex: Male

DRUGS (1)
  1. KRYXANA [Suspect]
     Active Substance: RIBOCICLIB
     Indication: BREAST CANCER
     Dosage: 600 MG, QD
     Route: 048
     Dates: start: 20190305, end: 20200418

REACTIONS (3)
  - Condition aggravated [Fatal]
  - Breast cancer [Fatal]
  - Malignant neoplasm progression [Fatal]
